FAERS Safety Report 16992298 (Version 1)
Quarter: 2019Q4

REPORT INFORMATION
  Report Type: Spontaneous
  Country: US (occurrence: US)
  Receive Date: 20191105
  Receipt Date: 20191105
  Transmission Date: 20200122
  Serious: No
  Sender: FDA-Public Use
  Company Number: US-CIPLA LTD.-2019US04356

PATIENT

DRUGS (1)
  1. GABAPENTIN. [Suspect]
     Active Substance: GABAPENTIN
     Indication: NEURITIS
     Dosage: 300 MILLIGRAM, QD AT BED TIME
     Route: 048
     Dates: start: 20190529

REACTIONS (2)
  - Poor quality sleep [Unknown]
  - Initial insomnia [Unknown]

NARRATIVE: CASE EVENT DATE: 20190530
